FAERS Safety Report 17091083 (Version 1)
Quarter: 2019Q4

REPORT INFORMATION
  Report Type: Report from Study
  Country: US (occurrence: US)
  Receive Date: 20191129
  Receipt Date: 20191129
  Transmission Date: 20200122
  Serious: Yes (Other)
  Sender: FDA-Public Use
  Company Number: US-ROCHE-2485342

PATIENT

DRUGS (1)
  1. BEVACIZUMAB. [Suspect]
     Active Substance: BEVACIZUMAB
     Indication: CARDIAC FAILURE HIGH OUTPUT
     Route: 042

REACTIONS (5)
  - Hypertension [Unknown]
  - Renal impairment [Unknown]
  - Proteinuria [Unknown]
  - Impaired healing [Unknown]
  - Drug ineffective [Unknown]
